FAERS Safety Report 14258233 (Version 1)
Quarter: 2017Q4

REPORT INFORMATION
  Report Type: Spontaneous
  Country: US (occurrence: US)
  Receive Date: 20171206
  Receipt Date: 20171206
  Transmission Date: 20180321
  Serious: Yes (Other)
  Sender: FDA-Public Use
  Company Number: None

PATIENT
  Age: 30 Year
  Sex: Female
  Weight: 70.2 kg

DRUGS (3)
  1. LAMICTAL BC [Concomitant]
  2. VALIUM [Suspect]
     Active Substance: DIAZEPAM
     Indication: PRODUCT USED FOR UNKNOWN INDICATION
     Route: 048
     Dates: start: 20171005, end: 20171120
  3. CYMBALTA [Concomitant]
     Active Substance: DULOXETINE HYDROCHLORIDE

REACTIONS (5)
  - Mania [None]
  - Insomnia [None]
  - Abnormal behaviour [None]
  - Sexual abuse [None]
  - Withdrawal syndrome [None]

NARRATIVE: CASE EVENT DATE: 20171113
